FAERS Safety Report 17091615 (Version 1)
Quarter: 2019Q4

REPORT INFORMATION
  Report Type: Spontaneous
  Country: SE (occurrence: SE)
  Receive Date: 20191129
  Receipt Date: 20191129
  Transmission Date: 20200122
  Serious: Yes (Hospitalization)
  Sender: FDA-Public Use
  Company Number: SE-009507513-1911SWE010045

PATIENT
  Sex: Female

DRUGS (2)
  1. LERGIGAN (PROMETHAZINE HYDROCHLORIDE) [Suspect]
     Active Substance: PROMETHAZINE HYDROCHLORIDE
     Dosage: 750 MILLIGRAM
     Route: 048
     Dates: start: 20180913, end: 20180913
  2. MIRTAZAPINE. [Suspect]
     Active Substance: MIRTAZAPINE
     Dosage: 300 MILLIGRAM
     Route: 048
     Dates: start: 20180913, end: 20180913

REACTIONS (6)
  - Intentional overdose [Unknown]
  - Tachycardia [Unknown]
  - Intentional self-injury [Unknown]
  - Hallucination, visual [Unknown]
  - Confusional state [Unknown]
  - Agitation [Unknown]

NARRATIVE: CASE EVENT DATE: 201809
